FAERS Safety Report 11815589 (Version 4)
Quarter: 2016Q1

REPORT INFORMATION
  Report Type: Report from Study
  Country: US (occurrence: US)
  Receive Date: 20151209
  Receipt Date: 20160113
  Transmission Date: 20160525
  Serious: Yes (Hospitalization)
  Sender: FDA-Public Use
  Company Number: US-EISAI MEDICAL RESEARCH-EC-2015-012454

PATIENT
  Age: 61 Year
  Sex: Female
  Weight: 76.7 kg

DRUGS (6)
  1. LENVIMA [Suspect]
     Active Substance: LENVATINIB
     Indication: THYROID CANCER
     Route: 048
     Dates: start: 20151026, end: 20151210
  2. CALCIUM + D [Concomitant]
     Active Substance: CALCIUM\VITAMIN D
  3. METOPROLOL. [Concomitant]
     Active Substance: METOPROLOL
  4. MVI [Concomitant]
     Active Substance: VITAMINS
  5. COLACE [Concomitant]
     Active Substance: DOCUSATE SODIUM
  6. LEVOTHYROXINE. [Concomitant]
     Active Substance: LEVOTHYROXINE

REACTIONS (5)
  - Hypertension [Unknown]
  - Cholelithiasis [Unknown]
  - Rash [Unknown]
  - Urinary tract infection [Unknown]
  - Headache [Unknown]

NARRATIVE: CASE EVENT DATE: 20151126
